FAERS Safety Report 13540142 (Version 3)
Quarter: 2017Q3

REPORT INFORMATION
  Report Type: Report from Study
  Country: US (occurrence: US)
  Receive Date: 20170512
  Receipt Date: 20170729
  Transmission Date: 20171127
  Serious: Yes (Other)
  Sender: FDA-Public Use
  Company Number: US-AMGEN-USASP2017069450

PATIENT
  Age: 66 Year
  Sex: Female

DRUGS (1)
  1. ENBREL [Suspect]
     Active Substance: ETANERCEPT
     Indication: RHEUMATOID ARTHRITIS
     Dosage: 50 MG, QWK
     Route: 065
     Dates: start: 2016

REACTIONS (9)
  - Erythema [Recovering/Resolving]
  - Injection site bruising [Recovered/Resolved]
  - Vomiting [Unknown]
  - Sinusitis [Recovering/Resolving]
  - Injection site haemorrhage [Unknown]
  - Fibromyalgia [Unknown]
  - Ear infection [Recovering/Resolving]
  - Rheumatoid arthritis [Not Recovered/Not Resolved]
  - Unevaluable event [Unknown]

NARRATIVE: CASE EVENT DATE: 2016
